FAERS Safety Report 8333496-3 (Version None)
Quarter: 2012Q2

REPORT INFORMATION
  Report Type: 
  Country: None (occurrence: None)
  Receive Date: 20120503
  Receipt Date: 20120426
  Transmission Date: 20120825
  Serious: No
  Sender: FDA-Public Use
  Company Number: US-PFIZER INC-2012083427

PATIENT
  Sex: Female
  Weight: 46.712 kg

DRUGS (13)
  1. PREVACID [Concomitant]
     Dosage: 15 MG, 1X/DAY
  2. SKELAXIN [Suspect]
     Indication: PERIARTHRITIS
     Dosage: 800 MG, 1X/DAY
     Route: 048
  3. FLEXERIL [Concomitant]
     Indication: PERIARTHRITIS
     Dosage: UNK
  4. ALAVERT [Concomitant]
     Dosage: UNK, AS NEEDED
  5. TOPAMAX [Concomitant]
     Indication: MIGRAINE
     Dosage: 50 MG, 2X/DAY
  6. SKELAXIN [Suspect]
     Dosage: HALF A TABLET OF 800 MG, 1X/DAY
     Route: 048
     Dates: start: 20120329, end: 20120331
  7. SKELAXIN [Suspect]
     Dosage: TID-QID (THREE TIMES A DAY\ FOUR TIMES A DAY) AS NEEDED
     Route: 048
  8. IBUPROFEN [Concomitant]
     Dosage: 800 MG, 3X/DAY (80 PRN)
  9. SKELAXIN [Suspect]
     Dosage: 800 MG, AS NEEDED (1 DOSAGE FORM TID-QID)
     Route: 048
     Dates: start: 20120326, end: 20120402
  10. ZOLOFT [Concomitant]
     Dosage: 25 MG, 2X/DAY
  11. PREMPRO [Concomitant]
     Indication: MENOPAUSAL SYMPTOMS
     Dosage: UNK
  12. XANAX [Concomitant]
     Dosage: 0.25 MG, AS NEEDED
  13. SYNTHROID [Concomitant]
     Indication: HYPOTHYROIDISM
     Dosage: 88 MG, UNK

REACTIONS (2)
  - FEELING ABNORMAL [None]
  - RASH [None]
